FAERS Safety Report 14247069 (Version 2)
Quarter: 2018Q1

REPORT INFORMATION
  Report Type: Spontaneous
  Country: FR (occurrence: FR)
  Receive Date: 20171204
  Receipt Date: 20180309
  Transmission Date: 20180508
  Serious: Yes (Other)
  Sender: FDA-Public Use
  Company Number: FR-AUROBINDO-AUR-APL-2017-44304

PATIENT
  Age: 68 Year
  Sex: Male

DRUGS (3)
  1. EZETIMIBE. [Concomitant]
     Active Substance: EZETIMIBE
     Indication: LOW DENSITY LIPOPROTEIN INCREASED
     Route: 065
  2. ATORVASTATIN [Suspect]
     Active Substance: ATORVASTATIN
     Indication: LOW DENSITY LIPOPROTEIN INCREASED
     Dosage: 8 MG, DAILY
  3. PRAVASTATIN. [Suspect]
     Active Substance: PRAVASTATIN
     Indication: LOW DENSITY LIPOPROTEIN INCREASED
     Dosage: UNK
     Dates: start: 201306

REACTIONS (10)
  - Atrial flutter [Unknown]
  - Immune-mediated necrotising myopathy [Recovered/Resolved]
  - Cardiomyopathy [Unknown]
  - Muscular weakness [Unknown]
  - Restrictive pulmonary disease [Unknown]
  - Intraductal papillary-mucinous carcinoma of pancreas [Unknown]
  - Pancreatic neoplasm [Unknown]
  - Pain in extremity [Unknown]
  - Hypertrophic cardiomyopathy [Unknown]
  - Blood creatine phosphokinase increased [Unknown]

NARRATIVE: CASE EVENT DATE: 201506
